FAERS Safety Report 25970586 (Version 1)
Quarter: 2025Q4

REPORT INFORMATION
  Report Type: Spontaneous
  Country: EU (occurrence: EU)
  Receive Date: 20251028
  Receipt Date: 20251028
  Transmission Date: 20260118
  Serious: Yes (Hospitalization)
  Sender: TEVA
  Company Number: None

PATIENT
  Age: 17 Year
  Sex: Male
  Weight: 70 kg

DRUGS (5)
  1. DICLOFENAC [Suspect]
     Active Substance: DICLOFENAC
     Indication: Pain
     Dosage: 3 TIMES 1 PIECE, DICLOFENAC SODIUM TABLET MSR / BRAND NAME NOT SPECIFIED
     Route: 048
     Dates: start: 20250920, end: 20250923
  2. CEFTRIAXONE [Concomitant]
     Active Substance: CEFTRIAXONE
     Indication: Product used for unknown indication
     Dosage: BRAND NAME NOT SPECIFIED
     Route: 065
  3. DEXAMETHASONE [Suspect]
     Active Substance: DEXAMETHASONE
     Indication: Meningitis bacterial
     Dosage: 4 DD 1 PIECE, BRAND NAME NOT SPECIFIED
     Route: 048
     Dates: start: 20250919
  4. NADROPARIN CALCIUM [Suspect]
     Active Substance: NADROPARIN CALCIUM
     Indication: Bedridden
     Dosage: 1 DD 1 PIECE, INJVLST, 2850IE/0.3ML (9500IE/ML) WWSP
     Route: 065
     Dates: start: 20250919
  5. AMOXICILLIN [Concomitant]
     Active Substance: AMOXICILLIN
     Indication: Product used for unknown indication
     Dosage: BRAND NAME NOT SPECIFIED
     Route: 048

REACTIONS (1)
  - Duodenal perforation [Recovered/Resolved]
